FAERS Safety Report 11709499 (Version 2)
Quarter: 2015Q4

REPORT INFORMATION
  Report Type: Spontaneous
  Country: US (occurrence: US)
  Receive Date: 20151104
  Receipt Date: 20151110
  Transmission Date: 20160304
  Serious: No
  Sender: FDA-Public Use
  Company Number: US-ELI_LILLY_AND_COMPANY-US201102007070

PATIENT
  Age: 74 Year
  Sex: Female

DRUGS (5)
  1. FORTEO [Suspect]
     Active Substance: TERIPARATIDE
     Dosage: 20 UG, QD
  2. FORTEO [Suspect]
     Active Substance: TERIPARATIDE
     Dosage: 20 UG, QOD
     Dates: start: 20110403
  3. FORTEO [Suspect]
     Active Substance: TERIPARATIDE
     Dosage: 20 UG, QD
  4. FORTEO [Suspect]
     Active Substance: TERIPARATIDE
     Indication: OSTEOPOROSIS
     Dosage: 20 UG, QD
     Dates: start: 20110217
  5. FORTEO [Suspect]
     Active Substance: TERIPARATIDE
     Dosage: 20 UG, QOD

REACTIONS (12)
  - Asthenia [Unknown]
  - Muscle spasms [Unknown]
  - Pain in extremity [Not Recovered/Not Resolved]
  - Fall [Unknown]
  - Contusion [Unknown]
  - Incorrect drug administration rate [Recovered/Resolved]
  - Peripheral swelling [Not Recovered/Not Resolved]
  - Insomnia [Unknown]
  - Fall [Unknown]
  - Dizziness [Unknown]
  - Incorrect drug administration rate [Not Recovered/Not Resolved]
  - Lower limb fracture [Unknown]

NARRATIVE: CASE EVENT DATE: 20110403
